FAERS Safety Report 6370126-4 (Version None)
Quarter: 2009Q3

REPORT INFORMATION
  Report Type: 
  Country: None (occurrence: None)
  Receive Date: 20090923
  Receipt Date: 20071206
  Transmission Date: 20100115
  Serious: No
  Sender: FDA-Public Use
  Company Number: US-ASTRAZENECA-2006UW20979

PATIENT
  Age: 15728 Day
  Sex: Female
  Weight: 90.7 kg

DRUGS (14)
  1. SEROQUEL [Suspect]
     Route: 048
     Dates: start: 20030512
  2. SEROQUEL [Suspect]
     Route: 048
  3. METOPROLOL TARTRATE [Concomitant]
     Dosage: 150 MG, 50 MG
     Route: 048
  4. ACTOS [Concomitant]
     Route: 048
     Dates: start: 20050216
  5. LIPITOR [Concomitant]
     Indication: BLOOD CHOLESTEROL
     Dosage: 10 - 40 MG
     Route: 065
  6. FLEXERIL [Concomitant]
     Route: 065
  7. PROTONIX [Concomitant]
     Route: 048
  8. ASPIRIN [Concomitant]
     Route: 048
  9. LISINOPRIL [Concomitant]
     Route: 048
     Dates: start: 20050216
  10. GLUCOTROL XL [Concomitant]
     Route: 065
  11. ATENOLOL [Concomitant]
     Route: 065
  12. HYDROMORPHONE [Concomitant]
     Route: 065
     Dates: start: 20080225
  13. LEXAPRO [Concomitant]
     Dosage: 10 MG, 20 MG
     Route: 048
  14. DEPAKOTE [Concomitant]
     Route: 048

REACTIONS (21)
  - ABDOMINAL PAIN [None]
  - DIABETES MELLITUS [None]
  - DIVERTICULITIS [None]
  - DYSPNOEA [None]
  - HYPERCHOLESTEROLAEMIA [None]
  - HYPOAESTHESIA [None]
  - MUSCLE SPASMS [None]
  - MYALGIA [None]
  - PNEUMONIA PRIMARY ATYPICAL [None]
  - POLYURIA [None]
  - POSTNASAL DRIP [None]
  - RENAL CYST [None]
  - RHINORRHOEA [None]
  - SCIATICA [None]
  - SLEEP APNOEA SYNDROME [None]
  - TENDONITIS [None]
  - TOOTH ABSCESS [None]
  - TYPE 2 DIABETES MELLITUS [None]
  - UPPER RESPIRATORY TRACT INFECTION [None]
  - VIRAL INFECTION [None]
  - WHEEZING [None]
